FAERS Safety Report 18308991 (Version 1)
Quarter: 2020Q3

REPORT INFORMATION
  Report Type: Report from Study
  Country: US (occurrence: US)
  Receive Date: 20200924
  Receipt Date: 20200924
  Transmission Date: 20201103
  Serious: Yes (Other)
  Sender: FDA-Public Use
  Company Number: US-MYLANLABS-2020M1080732

PATIENT
  Sex: Female

DRUGS (2)
  1. CISPLATIN. [Suspect]
     Active Substance: CISPLATIN
     Indication: CERVIX CARCINOMA
     Dosage: 40 MILLIGRAM/SQ. METER, QW, FIVE CYCLES
     Route: 042
  2. GEMCITABINE. [Suspect]
     Active Substance: GEMCITABINE
     Indication: CERVIX CARCINOMA
     Dosage: 50 MILLIGRAM/SQ. METER, QW
     Route: 042

REACTIONS (1)
  - Pulmonary embolism [Unknown]
